FAERS Safety Report 5273387-8 (Version None)
Quarter: 2007Q1

REPORT INFORMATION
  Report Type: 
  Country: None (occurrence: None)
  Receive Date: 20070322
  Receipt Date: 20070125
  Transmission Date: 20070707
  Serious: Yes (Life-Threatening, Hospitalization)
  Sender: FDA-Public Use
  Company Number: ES-ELI_LILLY_AND_COMPANY-ES200703004169

PATIENT
  Age: 68 Year
  Sex: Male

DRUGS (2)
  1. ZYPREXA [Suspect]
     Indication: PSYCHOTIC DISORDER
     Dosage: 2.5 MG, UNK
     Route: 048
     Dates: end: 20061111
  2. CITALOPRAM HYDROBROMIDE [Concomitant]
     Indication: PSYCHOTIC DISORDER
     Dosage: 2 MG, UNK
     Dates: start: 20061111

REACTIONS (1)
  - PULMONARY EMBOLISM [None]
